FAERS Safety Report 6242009-1 (Version None)
Quarter: 2009Q2

REPORT INFORMATION
  Report Type: 
  Country: None (occurrence: None)
  Receive Date: 20090622
  Receipt Date: 20090615
  Transmission Date: 20091009
  Serious: Yes (Life-Threatening, Hospitalization)
  Sender: FDA-Public Use
  Company Number: 2009007339

PATIENT
  Age: 68 Year
  Sex: Female

DRUGS (1)
  1. TREANDA [Suspect]
     Dosage: (70 MG/M2, DAYS 1 AND 2), INTRAVENOUS
     Route: 042

REACTIONS (6)
  - DIZZINESS [None]
  - FATIGUE [None]
  - FEBRILE NEUTROPENIA [None]
  - GINGIVAL BLEEDING [None]
  - PANCYTOPENIA [None]
  - PERFORMANCE STATUS DECREASED [None]
